FAERS Safety Report 20836264 (Version 1)
Quarter: 2022Q2

REPORT INFORMATION
  Report Type: Spontaneous
  Country: DE (occurrence: DE)
  Receive Date: 20220516
  Receipt Date: 20220516
  Transmission Date: 20220720
  Serious: Yes (Other)
  Sender: FDA-Public Use
  Company Number: DE-ROCHE-3084265

PATIENT
  Age: 73 Year
  Sex: Female
  Weight: 51 kg

DRUGS (10)
  1. DEXAMETHASONE [Suspect]
     Active Substance: DEXAMETHASONE
     Indication: Diffuse large B-cell lymphoma
     Dosage: 2 CYCLES
     Route: 065
     Dates: start: 201812, end: 201901
  2. LENALIDOMIDE [Suspect]
     Active Substance: LENALIDOMIDE
     Indication: Diffuse large B-cell lymphoma
     Dosage: 10 CYCLES, MAINTENANCE THERAPY
     Route: 065
     Dates: start: 201902, end: 201912
  3. CISPLATIN [Suspect]
     Active Substance: CISPLATIN
     Indication: Diffuse large B-cell lymphoma
     Dosage: 2 CYCLES
     Route: 065
     Dates: start: 201812, end: 201901
  4. MABTHERA [Suspect]
     Active Substance: RITUXIMAB
     Indication: Follicular lymphoma
     Dosage: 1ST LINE, R-CHOP, 6 CYCLES
     Route: 065
     Dates: start: 200001, end: 200001
  5. MABTHERA [Suspect]
     Active Substance: RITUXIMAB
     Dosage: 2ND LINE, R-BENDA, 6 CYCLES
     Route: 065
     Dates: start: 200904, end: 200909
  6. MABTHERA [Suspect]
     Active Substance: RITUXIMAB
     Dosage: 3RD LINE, R-BENDA, 6 CYCLES
     Route: 065
     Dates: start: 201209, end: 201301
  7. GEMCITABINE [Suspect]
     Active Substance: GEMCITABINE
     Indication: Diffuse large B-cell lymphoma
     Dosage: 2 CYCLES
     Route: 065
     Dates: start: 201812, end: 201901
  8. BENDAMUSTINE [Suspect]
     Active Substance: BENDAMUSTINE
     Indication: Follicular lymphoma
     Dosage: 2ND LINE, R-BENDA, 6 CYCLES
     Route: 065
     Dates: start: 200904, end: 200909
  9. BENDAMUSTINE [Suspect]
     Active Substance: BENDAMUSTINE
     Dosage: 3RD LINE, R-BENDA, 6 CYCLES
     Route: 065
     Dates: start: 201209, end: 201301
  10. CYCLOPHOSPHAMIDE\DOXORUBICIN\PREDNISONE\VINCRISTINE [Suspect]
     Active Substance: CYCLOPHOSPHAMIDE\DOXORUBICIN\PREDNISONE\VINCRISTINE
     Indication: Follicular lymphoma
     Dosage: 1ST LINE, R-CHOP, 6 CYCLES
     Route: 065
     Dates: start: 200001, end: 200001

REACTIONS (4)
  - Chronic obstructive pulmonary disease [Unknown]
  - Infection [Unknown]
  - Nephropathy toxic [Unknown]
  - Bone marrow failure [Unknown]
